FAERS Safety Report 17052935 (Version 2)
Quarter: 2019Q4

REPORT INFORMATION
  Report Type: Spontaneous
  Country: US (occurrence: US)
  Receive Date: 20191120
  Receipt Date: 20191219
  Transmission Date: 20200122
  Serious: No
  Sender: FDA-Public Use
  Company Number: US-KARYOPHARM-2019KPT000789

PATIENT

DRUGS (6)
  1. ZOFRAN [Concomitant]
     Active Substance: ONDANSETRON HYDROCHLORIDE
     Indication: NAUSEA
  2. DEXAMETHASONE. [Concomitant]
     Active Substance: DEXAMETHASONE
     Indication: PRODUCT USED FOR UNKNOWN INDICATION
     Dosage: 20 MG
  3. COMPAZINE [Concomitant]
     Active Substance: PROCHLORPERAZINE MALEATE
     Indication: PROPHYLAXIS
     Dosage: UNK
  4. COMPAZINE [Concomitant]
     Active Substance: PROCHLORPERAZINE MALEATE
     Indication: NAUSEA
  5. XPOVIO [Suspect]
     Active Substance: SELINEXOR
     Indication: PLASMA CELL MYELOMA
     Dosage: 40 MG, 2X/WEEK
     Route: 048
     Dates: start: 20191022
  6. ZOFRAN [Concomitant]
     Active Substance: ONDANSETRON HYDROCHLORIDE
     Indication: PROPHYLAXIS

REACTIONS (9)
  - Decreased appetite [Not Recovered/Not Resolved]
  - Non-cardiac chest pain [Recovering/Resolving]
  - Weight decreased [Not Recovered/Not Resolved]
  - Vomiting [Recovering/Resolving]
  - Neuropathy peripheral [Unknown]
  - Nausea [Recovered/Resolved]
  - Inappropriate schedule of product administration [Recovered/Resolved]
  - Diarrhoea [Recovering/Resolving]
  - Hyponatraemia [Not Recovered/Not Resolved]
